FAERS Safety Report 25658263 (Version 2)
Quarter: 2025Q4

REPORT INFORMATION
  Report Type: Spontaneous
  Country: US (occurrence: US)
  Receive Date: 20250808
  Receipt Date: 20251218
  Transmission Date: 20260117
  Serious: Yes (Hospitalization, Other)
  Sender: COOPERSURGICAL
  Company Number: US-COOPERSURGICAL, INC.-2025CPS005839

PATIENT
  Age: 24 Year
  Sex: Female
  Weight: 63.492 kg

DRUGS (1)
  1. PARAGARD T 380A [Suspect]
     Active Substance: COPPER
     Indication: Contraception
     Dosage: UNK
     Route: 015
     Dates: start: 20161216

REACTIONS (30)
  - Actinomycosis [Recovered/Resolved]
  - Hydronephrosis [Recovered/Resolved]
  - Tubo-ovarian abscess [Recovered/Resolved]
  - Ureteric stenosis [Unknown]
  - Acute kidney injury [Recovered/Resolved]
  - Ovarian fibrosis [Unknown]
  - Hydroureter [Recovered/Resolved]
  - Reproductive complication associated with device [Unknown]
  - Device breakage [Recovered/Resolved]
  - Foreign body in urogenital tract [Recovered/Resolved]
  - Complication of device removal [Recovered/Resolved]
  - Embedded device [Recovered/Resolved]
  - Uterine perforation [Unknown]
  - Urinary tract infection [Unknown]
  - Dysuria [Unknown]
  - Cystitis [Unknown]
  - Decreased appetite [Unknown]
  - Weight decreased [Unknown]
  - Emotional distress [Unknown]
  - Iron deficiency anaemia [Unknown]
  - Pollakiuria [Unknown]
  - Sterile pyuria [Unknown]
  - Heavy menstrual bleeding [Unknown]
  - Pain [Unknown]
  - Fungal infection [Unknown]
  - Bacterial vaginosis [Unknown]
  - Device dislocation [Recovered/Resolved]
  - Unevaluable event [Unknown]
  - Abnormal uterine bleeding [Unknown]
  - Back pain [Recovered/Resolved]

NARRATIVE: CASE EVENT DATE: 20211229
